FAERS Safety Report 18104304 (Version 1)
Quarter: 2020Q3

REPORT INFORMATION
  Report Type: Spontaneous
  Country: CO (occurrence: CO)
  Receive Date: 20200803
  Receipt Date: 20200803
  Transmission Date: 20201103
  Serious: Yes (Other)
  Sender: FDA-Public Use
  Company Number: NVSC2020CO167349

PATIENT
  Sex: Male
  Weight: 64 kg

DRUGS (4)
  1. MONTELUKAST [Suspect]
     Active Substance: MONTELUKAST SODIUM
     Indication: ASTHMA
     Dosage: 10 MG, QD,AT NIGHT
     Route: 048
  2. OLOPATADINE. [Concomitant]
     Active Substance: OLOPATADINE
     Indication: PRODUCT USED FOR UNKNOWN INDICATION
     Dosage: UNK
     Route: 065
  3. XOLAIR [Suspect]
     Active Substance: OMALIZUMAB
     Dosage: 150 MG,EVERY 15 DAYS
     Route: 030
     Dates: start: 202001
  4. XOLAIR [Suspect]
     Active Substance: OMALIZUMAB
     Indication: ASTHMA
     Dosage: 150 MG,EVERY 15 DAYS
     Route: 030

REACTIONS (4)
  - Off label use [Unknown]
  - Glaucoma [Unknown]
  - Intraocular pressure increased [Unknown]
  - Dyspnoea [Unknown]
